FAERS Safety Report 8887126 (Version 1)
Quarter: 2012Q4

REPORT INFORMATION
  Report Type: 
  Country: SE (occurrence: SE)
  Receive Date: 20121105
  Receipt Date: 20121105
  Transmission Date: 20130627
  Serious: Yes (Hospitalization)
  Sender: FDA-Public Use
  Company Number: SE-PFIZER INC-2012270838

PATIENT
  Age: 44 Year
  Sex: Male
  Weight: 79.8 kg

DRUGS (13)
  1. GENOTROPIN [Suspect]
     Indication: GROWTH HORMONE DEFICIENCY
     Dosage: 0.5 mg, 1x/day, 7 injections/week
     Route: 058
     Dates: start: 20010115
  2. LEVOTHYROXINE [Concomitant]
     Indication: BLOOD THYROID STIMULATING HORMONE DECREASED
     Dosage: UNK
     Dates: start: 19760101
  3. LEVOTHYROXINE [Concomitant]
     Indication: PRIMARY HYPOTHYROIDISM
  4. DESMOPRESSIN [Concomitant]
     Indication: BLOOD ANTIDIURETIC HORMONE DECREASED
     Dosage: UNK
     Dates: start: 19760101
  5. ATMOS [Concomitant]
     Indication: BLOOD LUTEINISING HORMONE DECREASED
     Dosage: UNK
     Dates: start: 19980618
  6. ATMOS [Concomitant]
     Indication: BLOOD FOLLICLE STIMULATING HORMONE DECREASED
  7. ATMOS [Concomitant]
     Indication: TESTICULAR HYPOGONADISM
  8. UNDESTOR [Concomitant]
     Indication: BLOOD LUTEINISING HORMONE DECREASED
     Dosage: UNK
     Dates: start: 19850101
  9. UNDESTOR [Concomitant]
     Indication: BLOOD FOLLICLE STIMULATING HORMONE DECREASED
  10. UNDESTOR [Concomitant]
     Indication: TESTICULAR HYPOGONADISM
  11. CETIRIZINE [Concomitant]
     Indication: ALLERGY
     Dosage: UNK
     Dates: start: 19991224
  12. CORTISONE ACETATE [Concomitant]
     Indication: BLOOD CORTICOTROPHIN DECREASED
     Dosage: UNK
     Dates: start: 19760101
  13. MINIRIN [Concomitant]
     Indication: BLOOD ANTIDIURETIC HORMONE DECREASED
     Dosage: UNK
     Dates: start: 19980210

REACTIONS (1)
  - Abdominal pain upper [Unknown]
